FAERS Safety Report 5078873-1 (Version None)
Quarter: 2006Q3

REPORT INFORMATION
  Report Type: 
  Country: None (occurrence: None)
  Receive Date: 20060814
  Receipt Date: 20060412
  Transmission Date: 20061208
  Serious: Yes (Other)
  Sender: FDA-Public Use
  Company Number: PHEH2006US04870

PATIENT
  Age: 28 Year
  Sex: Female

DRUGS (2)
  1. ANALGESICS [Concomitant]
  2. ZELNORM [Suspect]
     Indication: IRRITABLE BOWEL SYNDROME
     Dosage: 6 MG, BID
     Route: 048
     Dates: start: 20041201

REACTIONS (3)
  - ABDOMINAL PAIN [None]
  - CHOLECYSTECTOMY [None]
  - CHOLELITHIASIS [None]
